FAERS Safety Report 8930403 (Version 1)
Quarter: 2012Q4

REPORT INFORMATION
  Report Type: 
  Country: DE (occurrence: DE)
  Receive Date: 20121128
  Receipt Date: 20121128
  Transmission Date: 20130627
  Serious: Yes (Hospitalization)
  Sender: FDA-Public Use
  Company Number: DE-GLAXOSMITHKLINE-D0077934A

PATIENT
  Age: 80 Year
  Sex: Male

DRUGS (12)
  1. ELONTRIL [Suspect]
     Indication: DEPRESSION
     Route: 048
     Dates: start: 20120618, end: 20120708
  2. MOXONIDIN [Concomitant]
     Indication: CARDIAC DISORDER
     Dosage: .2MG per day
     Route: 048
  3. PANTOZOL [Concomitant]
     Dosage: 40MG per day
     Route: 048
  4. ASS [Concomitant]
     Dosage: 50MG per day
     Route: 048
  5. RIVOTRIL [Concomitant]
     Dosage: .5MG per day
     Route: 048
     Dates: start: 20120516, end: 20120710
  6. NACL 0.9% [Concomitant]
     Dosage: 1800MG per day
     Route: 048
     Dates: start: 20120516, end: 20120710
  7. SIMVASTATINE [Concomitant]
     Dosage: 20MG per day
     Route: 048
  8. LYRICA [Concomitant]
     Route: 048
  9. DELMUNO [Concomitant]
     Route: 048
  10. BISOPROLOL [Concomitant]
     Dosage: 5MG per day
     Route: 048
  11. INDAPAMIDE [Concomitant]
     Dosage: 1.5MG per day
     Route: 048
  12. ALDACTONE [Concomitant]
     Dosage: 25MG per day
     Route: 048

REACTIONS (1)
  - Alanine aminotransferase increased [Recovered/Resolved]
